FAERS Safety Report 10861534 (Version 4)
Quarter: 2015Q3

REPORT INFORMATION
  Report Type: Report from Study
  Country: JP (occurrence: JP)
  Receive Date: 20150223
  Receipt Date: 20150803
  Transmission Date: 20151125
  Serious: Yes (Hospitalization)
  Sender: FDA-Public Use
  Company Number: JP-JNJFOC-20150211316

PATIENT
  Age: 28 Year
  Sex: Male

DRUGS (8)
  1. FULMETA [Concomitant]
     Active Substance: MOMETASONE
     Indication: DERMATITIS ATOPIC
     Dosage: QUANTUM SUFFICIENT (Q.S) SEVERAL TIMES DAILY
     Route: 061
     Dates: start: 201205
  2. RINDERON V [Concomitant]
     Active Substance: BETAMETHASONE VALERATE
     Indication: DERMATITIS ATOPIC
     Dosage: QUANTUM SUFFICIENT (Q.S) SEVERAL TIMES DAILY
     Route: 061
     Dates: start: 20130313
  3. HIRUDOID (HEPARINOID) [Concomitant]
     Indication: DERMATITIS ATOPIC
     Dosage: QUANTUM SUFFICIENT (Q.S) SEVERAL TIMES DAILY
     Route: 061
     Dates: start: 201205
  4. PREZISTA [Suspect]
     Active Substance: DARUNAVIR ETHANOLATE
     Indication: HIV INFECTION
     Route: 048
     Dates: start: 20120412
  5. TRUVADA [Suspect]
     Active Substance: EMTRICITABINE\TENOFOVIR DISOPROXIL FUMARATE
     Indication: HIV INFECTION
     Route: 048
     Dates: start: 20120412
  6. NORVIR [Suspect]
     Active Substance: RITONAVIR
     Indication: HIV INFECTION
     Route: 048
     Dates: start: 20120412
  7. ALLEGRA [Concomitant]
     Active Substance: FEXOFENADINE HYDROCHLORIDE
     Indication: DERMATITIS ATOPIC
     Route: 048
     Dates: start: 20130313, end: 20130412
  8. BROTIZOLAM [Concomitant]
     Active Substance: BROTIZOLAM
     Indication: SLEEP DISORDER
     Route: 048
     Dates: start: 201303

REACTIONS (4)
  - Hyperlipidaemia [Recovering/Resolving]
  - Headache [Recovering/Resolving]
  - Dermatitis atopic [Not Recovered/Not Resolved]
  - Gastroenteritis [Recovering/Resolving]

NARRATIVE: CASE EVENT DATE: 20120417
